FAERS Safety Report 10311748 (Version 1)
Quarter: 2014Q3

REPORT INFORMATION
  Report Type: Spontaneous
  Country: US (occurrence: US)
  Receive Date: 20140717
  Receipt Date: 20140717
  Transmission Date: 20150326
  Serious: Yes (Other)
  Sender: FDA-Public Use
  Company Number: US-MERCK-1407USA006654

PATIENT
  Sex: Female
  Weight: 64.4 kg

DRUGS (1)
  1. JANUVIA [Suspect]
     Active Substance: SITAGLIPTIN PHOSPHATE
     Indication: TYPE 2 DIABETES MELLITUS
     Dosage: HALF 100 MG TABLET 1/DAY (50MG WITH EVENING MEALS)
     Route: 048
     Dates: start: 20070215, end: 20100916

REACTIONS (10)
  - Glomerular filtration rate abnormal [Unknown]
  - Blood urea abnormal [Unknown]
  - Lipase abnormal [Recovered/Resolved]
  - Amylase abnormal [Recovered/Resolved]
  - Sleep disorder due to a general medical condition [Recovered/Resolved]
  - Pain [Recovered/Resolved]
  - Muscle spasms [Recovered/Resolved]
  - Glycosylated haemoglobin increased [Unknown]
  - Myalgia [Recovered/Resolved]
  - Abdominal pain upper [Recovered/Resolved]

NARRATIVE: CASE EVENT DATE: 20100916
